FAERS Safety Report 9159380 (Version 1)
Quarter: 2013Q1

REPORT INFORMATION
  Report Type: Spontaneous
  Country: US (occurrence: None)
  Receive Date: 20130213
  Receipt Date: 20130213
  Transmission Date: 20140127
  Serious: Yes (Hospitalization, Other)
  Sender: FDA-Public Use
  Company Number: JPI-P-029722

PATIENT
  Age: 43 Year
  Sex: Male
  Weight: 93.44 kg

DRUGS (6)
  1. XYREM (500 MILLIGRAM/MILLITLITERS, SOLUTION) (SODIUM OXYBATE) [Suspect]
     Indication: CATAPLEXY
     Route: 048
     Dates: start: 20120718, end: 20130120
  2. GABAPENTIN [Concomitant]
  3. OMEPRAZOLE [Concomitant]
  4. VITAMIN B12 [Concomitant]
  5. VITAMIN D3 [Concomitant]
  6. ARMODAFINIL [Concomitant]

REACTIONS (7)
  - Multiple sclerosis [None]
  - Cerebrovascular accident [None]
  - Migraine [None]
  - Nuclear magnetic resonance imaging abnormal [None]
  - Sleep paralysis [None]
  - Headache [None]
  - Dizziness [None]
